FAERS Safety Report 18025210 (Version 1)
Quarter: 2020Q3

REPORT INFORMATION
  Report Type: Spontaneous
  Country: DE (occurrence: DE)
  Receive Date: 20200715
  Receipt Date: 20200715
  Transmission Date: 20201103
  Serious: Yes (Other)
  Sender: FDA-Public Use
  Company Number: DE-PFIZER INC-2020269019

PATIENT
  Age: 44 Year
  Sex: Female
  Weight: 44 kg

DRUGS (1)
  1. LANTAREL [Suspect]
     Active Substance: METHOTREXATE SODIUM
     Indication: ARTHRITIS
     Dosage: 10 MG
     Route: 048
     Dates: start: 20200505, end: 20200701

REACTIONS (8)
  - Palpitations [Not Recovered/Not Resolved]
  - Phlebitis [Not Recovered/Not Resolved]
  - Thrombosis [Unknown]
  - Arthralgia [Unknown]
  - Groin pain [Unknown]
  - Vascular pain [Not Recovered/Not Resolved]
  - Pain in extremity [Unknown]
  - Breath sounds abnormal [Not Recovered/Not Resolved]

NARRATIVE: CASE EVENT DATE: 202005
